FAERS Safety Report 20843024 (Version 4)
Quarter: 2022Q3

REPORT INFORMATION
  Report Type: Report from Study
  Country: US (occurrence: None)
  Receive Date: 20220518
  Receipt Date: 20220711
  Transmission Date: 20221027
  Serious: Yes (Death, Hospitalization)
  Sender: FDA-Public Use
  Company Number: US-ROCHE-3097247

PATIENT
  Age: 72 Year
  Sex: Male
  Weight: 78.5 kg

DRUGS (3)
  1. OBINUTUZUMAB [Suspect]
     Active Substance: OBINUTUZUMAB
     Indication: Chronic lymphocytic leukaemia
     Dosage: LAST DOSE ADMINISTRED BEFORE SAE -  10/MAR/2022
     Route: 042
     Dates: start: 20211216
  2. VENETOCLAX [Suspect]
     Active Substance: VENETOCLAX
     Indication: Chronic lymphocytic leukaemia
     Dosage: LAST DOSE ADMINISTRED BEFORE SAE -  06/APR/2022
     Route: 065
     Dates: start: 20220210
  3. IBRUTINIB [Suspect]
     Active Substance: IBRUTINIB
     Indication: Chronic lymphocytic leukaemia
     Dosage: LAST DOSE ADMINISTRED BEFORE SAE -  06/APR/2022
     Route: 065
     Dates: start: 20211216

REACTIONS (2)
  - Bone marrow failure [Fatal]
  - Anaemia [Unknown]

NARRATIVE: CASE EVENT DATE: 20220406
